FAERS Safety Report 12661309 (Version 1)
Quarter: 2016Q3

REPORT INFORMATION
  Report Type: Spontaneous
  Country: CH (occurrence: CH)
  Receive Date: 20160817
  Receipt Date: 20160817
  Transmission Date: 20161109
  Serious: Yes (Hospitalization)
  Sender: FDA-Public Use
  Company Number: CH-TEVA-683673ISR

PATIENT
  Age: 82 Year
  Sex: Female
  Weight: 77 kg

DRUGS (8)
  1. SEVIKAR HCT [Concomitant]
     Active Substance: AMLODIPINE BESYLATE\HYDROCHLOROTHIAZIDE\OLMESARTAN MEDOXOMIL
     Dosage: 1 DOSAGE FORMS DAILY; 1 DOSAGE FORM = HYDROCHLOROTHIAZIDE 12.5 MG/OLMESARTAN 20 MG/AMLODIPINE 5 MG
     Route: 048
  2. TORASEMID SANDOZ ECO [Concomitant]
     Dosage: 5 MILLIGRAM DAILY; STRENGTH 5 MG
     Route: 048
  3. CO-AMOXI-MEPHA [Suspect]
     Active Substance: AMOXICILLIN\CLAVULANATE POTASSIUM
     Indication: PNEUMONIA
     Route: 041
     Dates: start: 201607, end: 201607
  4. ASPIRIN CARDIO [Concomitant]
     Active Substance: ASPIRIN
     Dosage: 100 MILLIGRAM DAILY; STRENGTH 100 MG
     Route: 048
  5. EUTHYROX [Concomitant]
     Active Substance: LEVOTHYROXINE SODIUM
     Dosage: 100 MICROGRAM DAILY; STRENGTH REPORTED AS 0.1 MG
     Route: 048
  6. SOTALEX [Concomitant]
     Active Substance: SOTALOL
     Dosage: 80 MILLIGRAM DAILY; STRENGTH 80 MG
     Route: 048
  7. PANTOZOL [Concomitant]
     Active Substance: PANTOPRAZOLE SODIUM
     Dosage: 40 MILLIGRAM DAILY; STRENGTH 40 MG
     Route: 048
  8. CYMBALTA [Concomitant]
     Active Substance: DULOXETINE HYDROCHLORIDE
     Dosage: 60 MILLIGRAM DAILY; STRENGTH 60 MG
     Route: 048

REACTIONS (1)
  - Cholestatic liver injury [Recovering/Resolving]

NARRATIVE: CASE EVENT DATE: 201607
